FAERS Safety Report 18983866 (Version 1)
Quarter: 2021Q1

REPORT INFORMATION
  Report Type: Spontaneous
  Country: DE (occurrence: DE)
  Receive Date: 20210309
  Receipt Date: 20210309
  Transmission Date: 20210420
  Serious: Yes (Hospitalization)
  Sender: FDA-Public Use
  Company Number: DE-TEVA-2021-DE-1887285

PATIENT
  Age: 4 Year
  Sex: Female
  Weight: 12 kg

DRUGS (3)
  1. URSOFALK [Concomitant]
     Active Substance: URSODIOL
     Indication: CONGENITAL ABSENCE OF BILE DUCTS
     Dosage: 2 SEPARATED DOSES:UNIT DOSE:100MILLIGRAM
     Route: 048
     Dates: start: 201510
  2. MAGNESIUM VERLA N KONZENTRAT [Concomitant]
     Dosage: 5MILLIMOL
     Route: 048
     Dates: start: 201608
  3. CICLOSPORIN 100MG/ML [Suspect]
     Active Substance: CYCLOSPORINE
     Indication: LIVER TRANSPLANT
     Dosage: 50 MILLIGRAM DAILY; DAILY DOSE: 50 MG MILLGRAM (S) EVERY DAYS 2 SEPARATED DOSES
     Route: 048
     Dates: start: 201604

REACTIONS (4)
  - Pyrexia [Recovered/Resolved]
  - Nasopharyngitis [Recovered/Resolved]
  - Upper respiratory tract infection [Recovered/Resolved]
  - Cough [Recovered/Resolved]

NARRATIVE: CASE EVENT DATE: 201910
